FAERS Safety Report 10548685 (Version 4)
Quarter: 2016Q2

REPORT INFORMATION
  Report Type: Spontaneous
  Country: JP (occurrence: JP)
  Receive Date: 20141028
  Receipt Date: 20160404
  Transmission Date: 20160815
  Serious: Yes (Hospitalization, Disabling, Other)
  Sender: FDA-Public Use
  Company Number: JP-ACTELION-A-CH2014-106630

PATIENT
  Age: 40 Year
  Sex: Male
  Weight: 61 kg

DRUGS (23)
  1. SILDENAFIL. [Concomitant]
     Active Substance: SILDENAFIL
  2. TRICHLORMETHIAZIDE [Concomitant]
     Active Substance: TRICHLORMETHIAZIDE
  3. VELETRI [Suspect]
     Active Substance: EPOPROSTENOL
     Dosage: 168 NG/KG, PER MIN
     Route: 042
     Dates: start: 20140219, end: 20140318
  4. LOPERAMIDE [Concomitant]
     Active Substance: LOPERAMIDE
  5. VELETRI [Suspect]
     Active Substance: EPOPROSTENOL
     Dosage: 146 NG/KG, PER MIN
     Route: 042
     Dates: start: 20130919, end: 20131018
  6. CEFDINIR. [Concomitant]
     Active Substance: CEFDINIR
  7. OXYGEN. [Concomitant]
     Active Substance: OXYGEN
  8. VELETRI [Suspect]
     Active Substance: EPOPROSTENOL
     Indication: PULMONARY ARTERIAL HYPERTENSION
     Dosage: 155 NG/KG, PER MIN
     Route: 042
     Dates: start: 20131119, end: 20131218
  9. SULFAMETHOXAZOLE AND TRIMETHOPRIM [Concomitant]
     Active Substance: SULFAMETHOXAZOLE\TRIMETHOPRIM
  10. HYDROCORTISONE. [Concomitant]
     Active Substance: HYDROCORTISONE
  11. FUROSEMID [Concomitant]
     Active Substance: FUROSEMIDE
  12. VELETRI [Suspect]
     Active Substance: EPOPROSTENOL
     Dosage: 150 NG/KG, PER MIN
     Route: 042
     Dates: start: 20131019, end: 20131118
  13. TRACLEER [Suspect]
     Active Substance: BOSENTAN
     Indication: PULMONARY ARTERIAL HYPERTENSION
     Route: 048
  14. ALLOPURINOL. [Concomitant]
     Active Substance: ALLOPURINOL
  15. SPIRONOLACTON [Concomitant]
     Active Substance: SPIRONOLACTONE
  16. CEFAZOLIN [Concomitant]
     Active Substance: CEFAZOLIN
  17. CEFACLOR. [Concomitant]
     Active Substance: CEFACLOR
  18. MEROPENEM. [Concomitant]
     Active Substance: MEROPENEM
  19. VELETRI [Suspect]
     Active Substance: EPOPROSTENOL
     Dosage: 169 NG/KG, PER MIN
     Route: 042
     Dates: start: 20140319, end: 20140919
  20. VELETRI [Suspect]
     Active Substance: EPOPROSTENOL
     Dosage: 164 NG/KG, PER MIN
     Route: 042
     Dates: start: 20140119, end: 20140218
  21. TADALAFIL [Concomitant]
     Active Substance: TADALAFIL
  22. VELETRI [Suspect]
     Active Substance: EPOPROSTENOL
     Dosage: 159 NG/KG, PER MIN
     Route: 042
     Dates: start: 20131219, end: 20140118
  23. TORASEMIDE [Concomitant]
     Active Substance: TORSEMIDE

REACTIONS (9)
  - Anaemia [Not Recovered/Not Resolved]
  - Diarrhoea [Not Recovered/Not Resolved]
  - Device deposit issue [Unknown]
  - Product quality issue [Unknown]
  - Pseudomembranous colitis [Recovered/Resolved with Sequelae]
  - Device related infection [Recovered/Resolved]
  - Gastrointestinal haemorrhage [Recovered/Resolved with Sequelae]
  - Device occlusion [Unknown]
  - Haemoglobin decreased [Not Recovered/Not Resolved]

NARRATIVE: CASE EVENT DATE: 20131216
